FAERS Safety Report 15812115 (Version 1)
Quarter: 2019Q1

REPORT INFORMATION
  Report Type: Spontaneous
  Country: US (occurrence: US)
  Receive Date: 20190110
  Receipt Date: 20190110
  Transmission Date: 20190417
  Serious: Yes (Other)
  Sender: FDA-Public Use
  Company Number: None

PATIENT
  Age: 23 Year
  Sex: Female
  Weight: 82.8 kg

DRUGS (1)
  1. STRIDEX SENSITIVE [Suspect]
     Active Substance: SALICYLIC ACID
     Indication: ACNE
     Dosage: ?          QUANTITY:70 SOFT TOUCH PADS;?
     Route: 061

REACTIONS (4)
  - Erythema [None]
  - Rash vesicular [None]
  - Urticaria [None]
  - Swelling face [None]

NARRATIVE: CASE EVENT DATE: 20190106
